FAERS Safety Report 8478637-2 (Version None)
Quarter: 2012Q2

REPORT INFORMATION
  Report Type: 
  Country: None (occurrence: None)
  Receive Date: 20120629
  Receipt Date: 20120625
  Transmission Date: 20120825
  Serious: Yes (Hospitalization)
  Sender: FDA-Public Use
  Company Number: FR-PFIZER INC-2011193409

PATIENT
  Age: 63 Year
  Sex: Female
  Weight: 48 kg

DRUGS (2)
  1. EVEROLIMUS [Suspect]
     Indication: NEOPLASM
     Dosage: 5 MG, 1X/DAY
     Dates: start: 20110531
  2. AXITINIB [Suspect]
     Indication: NEOPLASM
     Dosage: 6 MG, 1X/DAY
     Dates: start: 20110524

REACTIONS (3)
  - PYREXIA [None]
  - ABDOMINAL PAIN UPPER [None]
  - NAUSEA [None]
